FAERS Safety Report 5353374-1 (Version None)
Quarter: 2007Q2

REPORT INFORMATION
  Report Type: 
  Country: None (occurrence: None)
  Receive Date: 20070518
  Receipt Date: 20070402
  Transmission Date: 20071010
  Serious: No
  Sender: FDA-Public Use
  Company Number: TPA2007A00729

PATIENT
  Age: 44 Year
  Sex: Female
  Weight: 49.8957 kg

DRUGS (1)
  1. ROZEREM [Suspect]
     Indication: INITIAL INSOMNIA
     Dosage: 8 MG, HS, PER ORAL
     Route: 048
     Dates: start: 20060801, end: 20060801

REACTIONS (3)
  - FEELING ABNORMAL [None]
  - POOR QUALITY SLEEP [None]
  - RAPID EYE MOVEMENTS SLEEP ABNORMAL [None]
